FAERS Safety Report 23321013 (Version 1)
Quarter: 2023Q4

REPORT INFORMATION
  Report Type: Spontaneous
  Country: CN (occurrence: CN)
  Receive Date: 20231220
  Receipt Date: 20231220
  Transmission Date: 20240110
  Serious: Yes (Other)
  Sender: FDA-Public Use
  Company Number: CN-ORGANON-O2312CHN001625

PATIENT
  Age: 30 Year
  Sex: Female
  Weight: 57.5 kg

DRUGS (13)
  1. FOLLITROPIN BETA [Suspect]
     Active Substance: FOLLITROPIN BETA
     Indication: Ovulation induction
     Dosage: SUBCUTANEOUS INJECTION, 120IU, QD
     Route: 058
     Dates: start: 20231119, end: 20231123
  2. FOLLITROPIN BETA [Suspect]
     Active Substance: FOLLITROPIN BETA
     Dosage: SUBCUTANEOUS INJECTION. 125IU, QD
     Route: 058
     Dates: start: 20231124, end: 20231126
  3. MENOTROPINS [Suspect]
     Active Substance: MENOTROPINS
     Indication: Ovulation induction
     Dosage: INTRAMUSCULAR INJECTION, 75IU, QD
     Route: 030
     Dates: start: 20231119, end: 20231126
  4. CHORIONIC GONADOTROPHIN [Suspect]
     Active Substance: CHORIOGONADOTROPIN ALFA
     Indication: Ovulation induction
     Dosage: INTRAMUSCULAR INJECTION, 2000IU, QD
     Route: 030
     Dates: start: 20231130, end: 20231130
  5. CETRORELIX ACETATE [Suspect]
     Active Substance: CETRORELIX ACETATE
     Indication: Ovulation induction
     Dosage: SUBCUTANEOUS INJECTION, 0.25MG, QD
     Route: 058
     Dates: start: 20231124, end: 20231125
  6. CETRORELIX ACETATE [Suspect]
     Active Substance: CETRORELIX ACETATE
     Dosage: SUBCUTANEOUS INJECTION, 0.25MG, QD
     Route: 058
     Dates: start: 20231127, end: 20231130
  7. GONAL-F [Suspect]
     Active Substance: FOLLITROPIN
     Indication: Ovulation induction
     Dosage: SUBCUTANEOUS INJECTION, 75IU, QD
     Route: 058
     Dates: start: 20231130, end: 20231130
  8. LUVERIS [Suspect]
     Active Substance: LUTROPIN ALFA
     Indication: Ovulation induction
     Dosage: SUBCUTANEOUS INJECTION, 75IU, QD
     Route: 058
     Dates: start: 20231130, end: 20231130
  9. LUVERIS [Suspect]
     Active Substance: LUTROPIN ALFA
     Dosage: SUBCUTANEOUS INJECTION, 75IU, QD
     Route: 058
     Dates: start: 20231127, end: 20231127
  10. TRIPTORELIN ACETATE [Suspect]
     Active Substance: TRIPTORELIN ACETATE
     Indication: Ovulation induction
     Dosage: SUBCUTANEOUS INJECTION, 0.2MG, QD
     Route: 058
     Dates: start: 20231130, end: 20231130
  11. SODIUM CHLORIDE [Concomitant]
     Active Substance: SODIUM CHLORIDE
     Indication: Vehicle solution use
     Dosage: INTRAMUSCULAR INJECTION, 2ML, QD
     Route: 030
     Dates: start: 20231119, end: 20231126
  12. SODIUM CHLORIDE [Concomitant]
     Active Substance: SODIUM CHLORIDE
     Dosage: INTRAMUSCULAR INJECTION, 2ML, QD
     Route: 030
     Dates: start: 20231130, end: 20231130
  13. STERILE WATER FOR INJECTION [Concomitant]
     Active Substance: WATER
     Indication: Vehicle solution use
     Dosage: SUBCUTANEOUS INJECTION, 1ML, QD
     Route: 058
     Dates: start: 20231130, end: 20231130

REACTIONS (4)
  - Ovarian hyperstimulation syndrome [Recovering/Resolving]
  - Abdominal pain [Recovering/Resolving]
  - Nausea [Recovering/Resolving]
  - Vomiting [Recovering/Resolving]

NARRATIVE: CASE EVENT DATE: 20231202
